FAERS Safety Report 25340644 (Version 1)
Quarter: 2025Q2

REPORT INFORMATION
  Report Type: Report from Study
  Country: GB (occurrence: GB)
  Receive Date: 20250521
  Receipt Date: 20250521
  Transmission Date: 20250716
  Serious: Yes (Hospitalization, Other)
  Sender: SAMSUNG BIOEPIS
  Company Number: GB-SAMSUNG BIOEPIS-SB-2025-10342

PATIENT
  Age: 59 Year
  Sex: Female

DRUGS (3)
  1. ETANERCEPT [Suspect]
     Active Substance: ETANERCEPT
     Indication: Rheumatoid arthritis
     Route: 058
     Dates: start: 20241217
  2. ETANERCEPT [Suspect]
     Active Substance: ETANERCEPT
     Route: 058
     Dates: start: 20241223
  3. METHOTREXATE [Suspect]
     Active Substance: METHOTREXATE
     Indication: Product used for unknown indication
     Route: 058

REACTIONS (12)
  - Illness [Unknown]
  - Rheumatoid arthritis [Unknown]
  - Malaise [Unknown]
  - Liver injury [Not Recovered/Not Resolved]
  - Administration site cellulitis [Unknown]
  - Injection site pruritus [Not Recovered/Not Resolved]
  - Injection site erythema [Not Recovered/Not Resolved]
  - Device issue [Unknown]
  - Jaundice [Unknown]
  - Nausea [Unknown]
  - Urticaria [Not Recovered/Not Resolved]
  - Blood potassium decreased [Unknown]

NARRATIVE: CASE EVENT DATE: 20250412
